FAERS Safety Report 7909295-0 (Version None)
Quarter: 2011Q4

REPORT INFORMATION
  Report Type: 
  Country: None (occurrence: None)
  Receive Date: 20111111
  Receipt Date: 20111107
  Transmission Date: 20120403
  Serious: Yes (Life-Threatening, Hospitalization, Other)
  Sender: FDA-Public Use
  Company Number: US-ELI_LILLY_AND_COMPANY-US201012003854

PATIENT
  Sex: Male

DRUGS (15)
  1. TRICOR [Concomitant]
     Indication: HYPERLIPIDAEMIA
     Dosage: 145 MG, QD
     Route: 048
  2. CELEBREX [Concomitant]
     Dosage: 200 MG, QD
     Route: 048
  3. XANAX [Concomitant]
     Dosage: 0.5 MG, TID
  4. METOPROLOL [Concomitant]
     Dosage: 50 MG, BID
  5. ALLOPURINOL [Concomitant]
     Dosage: 100 MG, QD
     Route: 048
  6. AMLODIPINE W/BENAZEPRIL [Concomitant]
     Dosage: 1 DF, BID
  7. CARDURA [Concomitant]
     Dosage: 8 MG, QD
  8. OMEPRAZOLE [Concomitant]
     Dosage: 20 MG, QD
     Route: 048
  9. HUMALOG MIX 50 [Concomitant]
     Dosage: UNK, UNKNOWN
  10. TRAMADOL HYDROCHLORIDE AND ACETAMINOPHEN [Concomitant]
     Dosage: UNK, PRN
  11. BYETTA [Suspect]
     Dosage: 5 UG, BID
     Dates: start: 20091202
  12. ASPIRIN [Concomitant]
     Dosage: 325 MG, QD
  13. ZETIA [Concomitant]
     Indication: HYPERLIPIDAEMIA
     Dosage: 10 MG, QD
     Route: 048
  14. LASIX [Concomitant]
     Dosage: 40 MG, BID
  15. MINOXIDIL [Concomitant]
     Dosage: 5 MG, QD
     Route: 048

REACTIONS (10)
  - PANCREATITIS ACUTE [None]
  - PANCREATITIS CHRONIC [None]
  - AORTIC ANEURYSM [None]
  - RENAL FAILURE [None]
  - ACUTE RESPIRATORY FAILURE [None]
  - OFF LABEL USE [None]
  - PYREXIA [None]
  - CYST [None]
  - MULTI-ORGAN FAILURE [None]
  - PNEUMONIA STAPHYLOCOCCAL [None]
